FAERS Safety Report 20940459 (Version 1)
Quarter: 2022Q2

REPORT INFORMATION
  Report Type: Other
  Country: GR (occurrence: None)
  Receive Date: 20220609
  Receipt Date: 20220609
  Transmission Date: 20220721
  Serious: Yes (Hospitalization)
  Sender: FDA-Public Use
  Company Number: GR-Merck Healthcare KGaA-9327714

PATIENT
  Age: 28 Year
  Sex: Female

DRUGS (3)
  1. METFORMIN [Suspect]
     Active Substance: METFORMIN HYDROCHLORIDE
     Indication: Polycystic ovaries
  2. NEBIVOLOL [Concomitant]
     Active Substance: NEBIVOLOL
     Indication: Polycystic ovaries
  3. DYDROGESTERONE [Concomitant]
     Active Substance: DYDROGESTERONE
     Indication: Polycystic ovaries
     Dosage: BEING ADMINISTERED ONLY DURING THE DAYS OF MENSTRUATION

REACTIONS (2)
  - Acute myocardial infarction [Recovering/Resolving]
  - Off label use [Unknown]
